FAERS Safety Report 16651132 (Version 1)
Quarter: 2019Q3

REPORT INFORMATION
  Report Type: Spontaneous
  Country: US (occurrence: US)
  Receive Date: 20190730
  Receipt Date: 20190730
  Transmission Date: 20191004
  Serious: Yes (Other)
  Sender: FDA-Public Use
  Company Number: None

PATIENT
  Age: 36 Year
  Sex: Female
  Weight: 57.61 kg

DRUGS (2)
  1. KYLEENA [Suspect]
     Active Substance: LEVONORGESTREL
     Indication: CONTRACEPTION
     Dates: start: 20190417
  2. KYLEENA [Suspect]
     Active Substance: LEVONORGESTREL
     Dates: start: 20190417

REACTIONS (4)
  - Mammary duct ectasia [None]
  - Vasospasm [None]
  - Nipple disorder [None]
  - Lactation disorder [None]
